FAERS Safety Report 13334196 (Version 1)
Quarter: 2017Q1

REPORT INFORMATION
  Report Type: Report from Study
  Country: US (occurrence: US)
  Receive Date: 20170313
  Receipt Date: 20170313
  Transmission Date: 20170428
  Serious: Yes (Death)
  Sender: FDA-Public Use
  Company Number: US-EXELIXIS-CABO-17008478

PATIENT
  Age: 77 Year
  Sex: Male

DRUGS (17)
  1. MEGACE [Concomitant]
     Active Substance: MEGESTROL ACETATE
  2. PROMETHAZINE [Concomitant]
     Active Substance: PROMETHAZINE\PROMETHAZINE HYDROCHLORIDE
  3. NORCO [Concomitant]
     Active Substance: ACETAMINOPHEN\HYDROCODONE BITARTRATE
  4. SILVADENE [Concomitant]
     Active Substance: SILVER SULFADIAZINE
  5. LASIX [Concomitant]
     Active Substance: FUROSEMIDE
  6. COLCHICINE. [Concomitant]
     Active Substance: COLCHICINE
  7. CYPROHEPTADINE. [Concomitant]
     Active Substance: CYPROHEPTADINE
  8. INDOCIN [Concomitant]
     Active Substance: INDOMETHACIN
  9. LOMOTIL [Concomitant]
     Active Substance: ATROPINE SULFATE\DIPHENOXYLATE HYDROCHLORIDE
  10. ALLEGRA [Concomitant]
     Active Substance: FEXOFENADINE HYDROCHLORIDE
  11. PROCARDIA [Concomitant]
     Active Substance: NIFEDIPINE
  12. READI-CAT [Concomitant]
     Active Substance: BARIUM SULFATE
  13. MELOXICAM. [Concomitant]
     Active Substance: MELOXICAM
  14. MAG-OX [Concomitant]
     Active Substance: MAGNESIUM OXIDE
  15. CABOMETYX [Suspect]
     Active Substance: CABOZANTINIB S-MALATE
     Indication: RENAL CANCER
     Dosage: 60 MG, QD
     Route: 048
     Dates: start: 20170209
  16. POTASSIUM CHLORIDE. [Concomitant]
     Active Substance: POTASSIUM CHLORIDE
  17. ZOFRAN [Concomitant]
     Active Substance: ONDANSETRON HYDROCHLORIDE

REACTIONS (1)
  - Death [Fatal]

NARRATIVE: CASE EVENT DATE: 20170223
